FAERS Safety Report 4371930-4 (Version None)
Quarter: 2004Q2

REPORT INFORMATION
  Report Type: 
  Country: None (occurrence: None)
  Receive Date: 20040603
  Receipt Date: 20040603
  Transmission Date: 20050107
  Serious: Yes (Disabling)
  Sender: FDA-Public Use
  Company Number: None

PATIENT
  Sex: Male
  Weight: 67.8128 kg

DRUGS (13)
  1. TENOFOVIR [Suspect]
     Indication: ACQUIRED IMMUNODEFICIENCY SYNDROME
     Dosage: 300 MG QD
     Dates: start: 20040519, end: 20040526
  2. EMTRIVA [Suspect]
     Indication: ACQUIRED IMMUNODEFICIENCY SYNDROME
     Dosage: 200 MG QD
     Dates: start: 20040519, end: 20040526
  3. SUSTIVA [Suspect]
     Indication: ACQUIRED IMMUNODEFICIENCY SYNDROME
     Dosage: 200 MG QD
     Dates: start: 20040519, end: 20040526
  4. PRILOSEC [Concomitant]
  5. VITAMIN B-12 [Concomitant]
  6. TESTOSTERONE [Concomitant]
  7. NEURONTIN [Concomitant]
  8. FLORINEF [Concomitant]
  9. METHADONE HCL [Concomitant]
  10. ALLEGRA [Concomitant]
  11. PHENERGAN [Concomitant]
  12. BACTRIM [Concomitant]
  13. ALBUTEROL [Concomitant]

REACTIONS (2)
  - DIARRHOEA [None]
  - LACTIC ACIDOSIS [None]
